FAERS Safety Report 25279493 (Version 1)
Quarter: 2025Q2

REPORT INFORMATION
  Report Type: Spontaneous
  Country: JP (occurrence: JP)
  Receive Date: 20250507
  Receipt Date: 20250507
  Transmission Date: 20250717
  Serious: Yes (Hospitalization)
  Sender: EISAI
  Company Number: JP-Eisai-EC-2025-188679

PATIENT
  Sex: Male

DRUGS (6)
  1. DONEPEZIL [Suspect]
     Active Substance: DONEPEZIL
     Indication: Cognitive disorder
  2. DONEPEZIL [Suspect]
     Active Substance: DONEPEZIL
     Dosage: 7 DAYS AFTER INITIATION
  3. RISPERIDONE [Suspect]
     Active Substance: RISPERIDONE
     Indication: Psychotic disorder
  4. RISPERIDONE [Suspect]
     Active Substance: RISPERIDONE
     Indication: Depression
  5. TRAZODONE [Suspect]
     Active Substance: TRAZODONE HYDROCHLORIDE
     Indication: Psychotic disorder
  6. TRAZODONE [Suspect]
     Active Substance: TRAZODONE HYDROCHLORIDE
     Indication: Depression

REACTIONS (1)
  - Neuroleptic malignant syndrome [Recovered/Resolved]
